FAERS Safety Report 8087488-2 (Version None)
Quarter: 2012Q1

REPORT INFORMATION
  Report Type: 
  Country: None (occurrence: None)
  Receive Date: 20120128
  Receipt Date: 20110524
  Transmission Date: 20120608
  Serious: No
  Sender: FDA-Public Use
  Company Number: US-ABBOTT-11P-163-0728117-00

PATIENT
  Age: 49 Year
  Sex: Male

DRUGS (6)
  1. AZATHIOPRINE [Concomitant]
     Indication: COLITIS ULCERATIVE
     Dosage: 3 TABLETS DAILY
  2. FLUTICASONE PROPIONATE [Concomitant]
     Indication: RHINITIS
  3. ASTEPRO [Concomitant]
     Indication: SINUSITIS
     Dosage: 2 SPRAYS IN EACH NOSTRIL IN MORNING
     Route: 045
  4. ASTEPRO [Concomitant]
     Indication: RHINITIS
  5. FLUTICASONE PROPIONATE [Concomitant]
     Indication: SINUSITIS
  6. HUMIRA [Suspect]
     Indication: ANKYLOSING SPONDYLITIS
     Dates: start: 20080101

REACTIONS (3)
  - INJECTION SITE PAIN [None]
  - COLITIS ULCERATIVE [None]
  - INJECTION SITE HAEMORRHAGE [None]
